FAERS Safety Report 16439927 (Version 1)
Quarter: 2019Q3

REPORT INFORMATION
  Report Type: Spontaneous
  Country: US (occurrence: US)
  Receive Date: 20190616
  Receipt Date: 20190616
  Transmission Date: 20191004
  Serious: Yes (Disabling)
  Sender: FDA-Public Use
  Company Number: None

PATIENT
  Age: 74 Year
  Sex: Female
  Weight: 46.35 kg

DRUGS (1)
  1. AIMOVIG [Suspect]
     Active Substance: ERENUMAB-AOOE
     Indication: MIGRAINE
     Dosage: ?          QUANTITY:2 INJECTION(S);OTHER FREQUENCY:MONTHLY;OTHER ROUTE:INJECTION INTO FATTY ABDOMINAL TISSUE?
     Dates: start: 20181001, end: 20181201

REACTIONS (14)
  - Abdominal pain [None]
  - Myalgia [None]
  - Musculoskeletal stiffness [None]
  - Pain in extremity [None]
  - Irritable bowel syndrome [None]
  - Rash [None]
  - Abdominal distension [None]
  - Eye pain [None]
  - Fatigue [None]
  - Neuralgia [None]
  - Migraine [None]
  - Crepitations [None]
  - Headache [None]
  - Haematoma [None]

NARRATIVE: CASE EVENT DATE: 20181224
